FAERS Safety Report 5300926-0 (Version None)
Quarter: 2007Q2

REPORT INFORMATION
  Report Type: 
  Country: None (occurrence: None)
  Receive Date: 20070418
  Receipt Date: 20070404
  Transmission Date: 20071010
  Serious: Yes (Hospitalization)
  Sender: FDA-Public Use
  Company Number: GB-ROCHE-492572

PATIENT
  Age: 8 Year
  Sex: Male

DRUGS (3)
  1. CEFTRIAXONE SODIUM [Suspect]
     Indication: LUNG CONSOLIDATION
     Route: 042
  2. IBUPROFEN [Suspect]
     Indication: VIRAEMIA
     Route: 048
  3. PARACETAMOL [Suspect]
     Indication: VIRAEMIA
     Route: 048

REACTIONS (13)
  - ABDOMINAL PAIN [None]
  - ANURIA [None]
  - BLOOD CREATININE INCREASED [None]
  - BODY TEMPERATURE INCREASED [None]
  - BREATH SOUNDS ABNORMAL [None]
  - LUNG CONSOLIDATION [None]
  - OEDEMA PERIPHERAL [None]
  - RENAL PAPILLARY NECROSIS [None]
  - SOMNOLENCE [None]
  - URETERIC OBSTRUCTION [None]
  - URETHRAL HAEMORRHAGE [None]
  - URINE OUTPUT DECREASED [None]
  - VOMITING [None]
